FAERS Safety Report 12329756 (Version 1)
Quarter: 2016Q2

REPORT INFORMATION
  Report Type: Spontaneous
  Country: US (occurrence: US)
  Receive Date: 20160503
  Receipt Date: 20160503
  Transmission Date: 20160815
  Serious: No
  Sender: FDA-Public Use
  Company Number: US-ASTRAZENECA-2016SE45023

PATIENT
  Sex: Female

DRUGS (1)
  1. SYMBICORT [Suspect]
     Active Substance: BUDESONIDE\FORMOTEROL FUMARATE DIHYDRATE
     Dosage: 160 4.5, 2 PUFFS TWICE A DAY.
     Route: 055

REACTIONS (7)
  - Circumstance or information capable of leading to medication error [Unknown]
  - Retching [Unknown]
  - Intentional product misuse [Unknown]
  - Product quality issue [Unknown]
  - Drug effect increased [Unknown]
  - Bronchitis [Unknown]
  - Drug dose omission [Unknown]
